FAERS Safety Report 6585290-1 (Version None)
Quarter: 2010Q1

REPORT INFORMATION
  Report Type: 
  Country: None (occurrence: None)
  Receive Date: 20100217
  Receipt Date: 20100204
  Transmission Date: 20100710
  Serious: Yes (Hospitalization)
  Sender: FDA-Public Use
  Company Number: AT-ELI_LILLY_AND_COMPANY-AT201001004887

PATIENT
  Sex: Female

DRUGS (3)
  1. EXENATIDE [Suspect]
     Dosage: 10 UG, 2/D
     Dates: start: 20070719
  2. METFORMIN HCL [Suspect]
     Dosage: 2000 MG, DAILY (1/D)
     Dates: start: 20070704, end: 20100119
  3. METFORMIN HCL [Suspect]
     Dosage: UNK, UNK
     Dates: start: 20100121

REACTIONS (1)
  - EYELID INFECTION [None]
